FAERS Safety Report 7553171-2 (Version None)
Quarter: 2011Q2

REPORT INFORMATION
  Report Type: 
  Country: None (occurrence: None)
  Receive Date: 20110617
  Receipt Date: 20110608
  Transmission Date: 20111010
  Serious: Yes (Hospitalization, Other)
  Sender: FDA-Public Use
  Company Number: US-BIOGENIDEC-2010BI023450

PATIENT
  Age: 71 Year
  Sex: Female

DRUGS (9)
  1. THYROID CAPSULES (NOS) [Concomitant]
  2. STOOL SOFTENER (NOS) [Concomitant]
  3. SYNTHROID [Concomitant]
  4. JANUVIA [Concomitant]
  5. MULTI-VITAMIN [Concomitant]
  6. AMITRIPTYLINE HYDROCHLORIDE [Concomitant]
  7. LANTUS [Concomitant]
     Dosage: DOSE UNIT:40
  8. TYSABRI [Suspect]
     Indication: MULTIPLE SCLEROSIS
     Route: 042
     Dates: start: 20080527, end: 20100727
  9. ASPIRIN [Concomitant]

REACTIONS (4)
  - URINARY TRACT INFECTION [None]
  - FATIGUE [None]
  - FEELING ABNORMAL [None]
  - PROGRESSIVE MULTIFOCAL LEUKOENCEPHALOPATHY [None]
